FAERS Safety Report 7176995-2 (Version None)
Quarter: 2010Q4

REPORT INFORMATION
  Report Type: 
  Country: None (occurrence: None)
  Receive Date: 20101220
  Receipt Date: 20100302
  Transmission Date: 20110411
  Serious: No
  Sender: FDA-Public Use
  Company Number: US-ABBOTT-10P-163-0630317-00

PATIENT
  Sex: Female
  Weight: 90.8 kg

DRUGS (3)
  1. ADVICOR [Suspect]
     Indication: PRODUCT USED FOR UNKNOWN INDICATION
     Dates: end: 20100215
  2. ADVICOR [Suspect]
     Dosage: MEDICATION DOUBLED
  3. DECLINE LONG LIST OF MEDICATION [Concomitant]
     Indication: BLOOD CHOLESTEROL ABNORMAL

REACTIONS (2)
  - MYALGIA [None]
  - PRURITUS [None]
